FAERS Safety Report 15330259 (Version 1)
Quarter: 2018Q3

REPORT INFORMATION
  Report Type: Spontaneous
  Country: US (occurrence: US)
  Receive Date: 20180829
  Receipt Date: 20180829
  Transmission Date: 20181010
  Serious: Yes (Other)
  Sender: FDA-Public Use
  Company Number: US-SA-2018SA229382

PATIENT
  Age: 45 Year
  Sex: Male

DRUGS (2)
  1. INSULIN ASPART [Suspect]
     Active Substance: INSULIN ASPART
     Indication: DIABETES MELLITUS
     Dosage: 8 U, TID WITH MEALS
     Route: 058
     Dates: start: 20180501
  2. LANTUS [Suspect]
     Active Substance: INSULIN GLARGINE
     Indication: DIABETES MELLITUS
     Dosage: 20 U, HS
     Route: 058
     Dates: start: 2018

REACTIONS (1)
  - Ischaemic stroke [Not Recovered/Not Resolved]

NARRATIVE: CASE EVENT DATE: 20180531
